FAERS Safety Report 7067648-X (Version None)
Quarter: 2010Q4

REPORT INFORMATION
  Report Type: 
  Country: None (occurrence: None)
  Receive Date: 20101020
  Receipt Date: 20101006
  Transmission Date: 20110411
  Serious: Yes (Death, Other)
  Sender: FDA-Public Use
  Company Number: 011362

PATIENT
  Age: 52 Year
  Sex: Male

DRUGS (6)
  1. BUSULFEX [Suspect]
     Indication: BONE MARROW CONDITIONING REGIMEN
     Dosage: 0.8 MG/KG, Q6HR, INTRAVENOUS; 1 MG/KG, DAILY DOSE, INTRAVENOUS
     Route: 042
     Dates: start: 20010918, end: 20010919
  2. BUSULFEX [Suspect]
     Indication: BONE MARROW CONDITIONING REGIMEN
     Dosage: 0.8 MG/KG, Q6HR, INTRAVENOUS; 1 MG/KG, DAILY DOSE, INTRAVENOUS
     Route: 042
     Dates: start: 20010919, end: 20010920
  3. MELPHALAN HYDROCHLORIDE [Concomitant]
  4. FLUDARABINE PHOSPHATE [Concomitant]
  5. ANTILYMPHOCYTE IMMUNOGLOBULIN (RABBIT) (ANTILYMPHOCYTE IMMUNOGLOBULIN [Concomitant]
  6. ANTI-THYMOCYTE GLOBULIN NOS [Concomitant]

REACTIONS (3)
  - EPSTEIN-BARR VIRUS ASSOCIATED LYMPHOPROLIFERATIVE DISORDER [None]
  - LIVER FUNCTION TEST ABNORMAL [None]
  - PSYCHOTIC DISORDER [None]
